FAERS Safety Report 5015978-5 (Version None)
Quarter: 2006Q2

REPORT INFORMATION
  Report Type: 
  Country: None (occurrence: None)
  Receive Date: 20060525
  Receipt Date: 20060505
  Transmission Date: 20061013
  Serious: Yes (Hospitalization)
  Sender: FDA-Public Use
  Company Number: FR200605001673

PATIENT
  Age: 90 Year
  Sex: Female

DRUGS (9)
  1. FORTEO [Suspect]
     Indication: OSTEOPOROSIS
     Dosage: 20 UG, DAILY (1/D), SUBCUTANEOUS
     Route: 058
     Dates: start: 20051206
  2. FORTEO [Concomitant]
  3. COZAAR [Concomitant]
  4. LEVOTHYROXINE SODIUM [Concomitant]
  5. AMLODIPINE BESYLATE [Concomitant]
  6. MONOCRIXO (TRAMADOL) [Concomitant]
  7. INEXIUM (ESOMEPRAZOLE) [Concomitant]
  8. GAVISCON [Concomitant]
  9. ACETAMINOPHEN [Concomitant]

REACTIONS (5)
  - CARDIAC DISORDER [None]
  - DEPRESSED LEVEL OF CONSCIOUSNESS [None]
  - HYPERCHOLESTEROLAEMIA [None]
  - LOSS OF CONSCIOUSNESS [None]
  - MALAISE [None]
